FAERS Safety Report 7082171-4 (Version None)
Quarter: 2010Q4

REPORT INFORMATION
  Report Type: 
  Country: None (occurrence: None)
  Receive Date: 20101103
  Receipt Date: 20101028
  Transmission Date: 20110411
  Serious: Yes (Hospitalization, Other)
  Sender: FDA-Public Use
  Company Number: JP-ABBOTT-10P-087-0671594-00

PATIENT
  Sex: Female
  Weight: 44 kg

DRUGS (5)
  1. KLARICID TAB [Suspect]
     Indication: ATYPICAL MYCOBACTERIAL INFECTION
     Route: 048
     Dates: start: 20090604, end: 20090615
  2. KLARICID TAB [Suspect]
     Route: 048
     Dates: start: 20090616, end: 20090630
  3. KLARICID TAB [Suspect]
     Route: 048
     Dates: start: 20090701, end: 20090904
  4. RIFAMPICIN [Suspect]
     Indication: ATYPICAL MYCOBACTERIAL INFECTION
     Route: 048
     Dates: start: 20090604, end: 20090904
  5. ETHAMBUTOL HYDROCHLORIDE [Suspect]
     Indication: ATYPICAL MYCOBACTERIAL INFECTION
     Route: 048
     Dates: start: 20090604, end: 20090904

REACTIONS (7)
  - ANAEMIA [None]
  - DYSGEUSIA [None]
  - HERPES ZOSTER [None]
  - NAUSEA [None]
  - PANCYTOPENIA [None]
  - PYREXIA [None]
  - STOMATITIS [None]
